FAERS Safety Report 18343077 (Version 1)
Quarter: 2020Q4

REPORT INFORMATION
  Report Type: Spontaneous
  Country: US (occurrence: US)
  Receive Date: 20201002
  Receipt Date: 20201002
  Transmission Date: 20210113
  Serious: Yes (Death, Other)
  Sender: FDA-Public Use
  Company Number: None

PATIENT
  Age: 70 Year
  Sex: Male
  Weight: 77.4 kg

DRUGS (1)
  1. YESCARTA [Suspect]
     Active Substance: AXICABTAGENE CILOLEUCEL
     Indication: DIFFUSE LARGE B-CELL LYMPHOMA RECURRENT
     Dates: start: 20200924, end: 20200924

REACTIONS (24)
  - Mental status changes [None]
  - Hepatic function abnormal [None]
  - Atrial fibrillation [None]
  - Pupil fixed [None]
  - Hypothermia [None]
  - Cytokine release syndrome [None]
  - Pyrexia [None]
  - Hypotension [None]
  - Pneumoperitoneum [None]
  - Coagulopathy [None]
  - Blood triglycerides increased [None]
  - Respiratory arrest [None]
  - Pneumothorax [None]
  - Systolic dysfunction [None]
  - Laparotomy [None]
  - Brain oedema [None]
  - Brain herniation [None]
  - Renal failure [None]
  - Transaminases increased [None]
  - Neurotoxicity [None]
  - Serum ferritin increased [None]
  - Tachypnoea [None]
  - Lactic acidosis [None]
  - Pleural effusion [None]

NARRATIVE: CASE EVENT DATE: 20201001
